FAERS Safety Report 7341283-8 (Version None)
Quarter: 2011Q1

REPORT INFORMATION
  Report Type: 
  Country: None (occurrence: None)
  Receive Date: 20110309
  Receipt Date: 20110303
  Transmission Date: 20110831
  Serious: Yes (Death, Hospitalization, Other)
  Sender: FDA-Public Use
  Company Number: PHEH2006US01246

PATIENT
  Sex: Female
  Weight: 48.073 kg

DRUGS (36)
  1. ZOMETA [Suspect]
     Indication: METASTASES TO BONE
     Dosage: 4 MG, MONTHLY
     Dates: start: 20011206, end: 20040427
  2. TAXOTERE [Concomitant]
     Dosage: 40 MG, UNK
     Dates: start: 20041227
  3. CYTOXAN [Concomitant]
     Indication: BREAST CANCER
     Dates: start: 20060209
  4. ZOLOFT [Concomitant]
     Indication: BREAST CANCER
     Dosage: 10 MG, BID
  5. MULTI-VITAMINS [Concomitant]
  6. CARBOPLATIN [Concomitant]
     Dosage: 300 MG, UNK
     Dates: start: 20061220
  7. DOXEPIN [Concomitant]
     Dosage: 0.1 MG, QD
     Route: 048
  8. ASPIRIN [Concomitant]
  9. TRAZODONE HCL [Concomitant]
  10. VITAMIN B6 [Concomitant]
  11. WELLBUTRIN [Concomitant]
     Indication: DEPRESSION
     Route: 048
  12. NAPROSYN [Concomitant]
  13. HYDROCODONE BITARTRATE [Concomitant]
     Dosage: 750 MG, PRN
     Route: 048
  14. ARANESP [Concomitant]
     Dates: start: 20050110
  15. DAYPRO [Concomitant]
  16. AVINZA [Concomitant]
     Dosage: 30MG,
  17. AREDIA [Suspect]
     Dosage: 60 MG MONTHLY
     Route: 042
     Dates: start: 20040824, end: 20050725
  18. PROZAC [Concomitant]
     Indication: DEPRESSION
     Dosage: 20 MG, QD
     Route: 048
  19. SYNTHROID [Concomitant]
     Dosage: 0.1 MG, QD
     Route: 048
  20. LEVOTHROID [Concomitant]
  21. CIPROFLOXACIN [Concomitant]
  22. ZOMETA [Suspect]
     Dosage: 4 MG, MONTHLY
     Dates: start: 20060228, end: 20070115
  23. XELODA [Concomitant]
     Indication: BREAST CANCER METASTATIC
     Dosage: 500 MG, TID
     Route: 048
     Dates: start: 20040413
  24. ARIMIDEX [Concomitant]
     Indication: METASTASES TO BONE
     Dosage: UNK, QD
     Route: 048
     Dates: start: 20011115, end: 20040224
  25. ALBUTEROL [Concomitant]
     Dosage: UNK, PRN
  26. GEMZAR [Concomitant]
     Dates: start: 20041227
  27. SPIRIVA [Concomitant]
  28. WARFARIN SODIUM [Concomitant]
  29. TAMOXIFEN CITRATE [Concomitant]
     Indication: BREAST CANCER
  30. MEGACE [Concomitant]
     Dates: start: 20040201
  31. FOSAMAX [Concomitant]
     Dosage: 10 MG
  32. DECADRON [Concomitant]
     Dosage: 4MG,
  33. AREDIA [Suspect]
     Dosage: 30 MG, MONTHLY
     Route: 042
     Dates: start: 20050726, end: 20060119
  34. IBUPROFEN [Concomitant]
  35. BISACODYL [Concomitant]
  36. AMITRIPTYLINE [Concomitant]
     Indication: MUSCLE SPASMS
     Dosage: UNK
     Dates: start: 19940101

REACTIONS (69)
  - DEATH [None]
  - ORAL CANDIDIASIS [None]
  - BACK PAIN [None]
  - POSTURE ABNORMAL [None]
  - SWELLING FACE [None]
  - VISION BLURRED [None]
  - HEADACHE [None]
  - MITRAL VALVE INCOMPETENCE [None]
  - ANGINA PECTORIS [None]
  - OSTEONECROSIS OF JAW [None]
  - WEIGHT DECREASED [None]
  - INTERVERTEBRAL DISC DEGENERATION [None]
  - CARPAL TUNNEL SYNDROME [None]
  - PAIN IN EXTREMITY [None]
  - OBSTRUCTIVE UROPATHY [None]
  - INTERVERTEBRAL DISC PROTRUSION [None]
  - GLAUCOMA [None]
  - IMPAIRED HEALING [None]
  - HYPOTHYROIDISM [None]
  - ASTHMA [None]
  - PLEURAL FIBROSIS [None]
  - CONSTIPATION [None]
  - BONE DENSITY DECREASED [None]
  - DECREASED APPETITE [None]
  - METASTASIS [None]
  - OSTEOPENIA [None]
  - FOLLICULITIS [None]
  - GASTRITIS [None]
  - SYNOVIAL CYST [None]
  - ILEUS [None]
  - EXCESSIVE GRANULATION TISSUE [None]
  - THROMBOSIS [None]
  - TENDON DISORDER [None]
  - MOBILITY DECREASED [None]
  - NEOPLASM MALIGNANT [None]
  - WRIST FRACTURE [None]
  - OSTEOARTHRITIS [None]
  - TRICUSPID VALVE INCOMPETENCE [None]
  - PAIN IN JAW [None]
  - NUCLEAR MAGNETIC RESONANCE IMAGING ABNORMAL [None]
  - HIP FRACTURE [None]
  - BIOPSY BLADDER ABNORMAL [None]
  - ANAEMIA [None]
  - ARTHRALGIA [None]
  - AORTIC CALCIFICATION [None]
  - ATELECTASIS [None]
  - BONE SCAN ABNORMAL [None]
  - GINGIVAL BLEEDING [None]
  - NAUSEA [None]
  - PULMONARY MASS [None]
  - BONE EROSION [None]
  - BIOPSY SKIN ABNORMAL [None]
  - HYPOAESTHESIA [None]
  - IMPAIRED WORK ABILITY [None]
  - HYDRONEPHROSIS [None]
  - OSTEITIS DEFORMANS [None]
  - DEHYDRATION [None]
  - HORDEOLUM [None]
  - RETINAL DYSTROPHY [None]
  - MACULAR DEGENERATION [None]
  - BONE LESION [None]
  - BONE DISORDER [None]
  - OSTEOMYELITIS [None]
  - GINGIVAL DISORDER [None]
  - VOMITING [None]
  - FEMORAL NECK FRACTURE [None]
  - VENTRICULAR HYPOKINESIA [None]
  - APLASTIC ANAEMIA [None]
  - CATARACT [None]
